FAERS Safety Report 6736129-2 (Version None)
Quarter: 2010Q2

REPORT INFORMATION
  Report Type: 
  Country: None (occurrence: None)
  Receive Date: 20100521
  Receipt Date: 20100513
  Transmission Date: 20101027
  Serious: Yes (Other)
  Sender: FDA-Public Use
  Company Number: US-ROCHE-703816

PATIENT
  Sex: Male
  Weight: 95.5 kg

DRUGS (2)
  1. BEVACIZUMAB [Suspect]
     Route: 031
  2. LUCENTIS [Suspect]
     Dosage: UNK
     Route: 031

REACTIONS (2)
  - EYE INFLAMMATION [None]
  - INTRAOCULAR PRESSURE INCREASED [None]
